FAERS Safety Report 24309739 (Version 1)
Quarter: 2024Q3

REPORT INFORMATION
  Report Type: Report from Study
  Country: ZA (occurrence: None)
  Receive Date: 20240912
  Receipt Date: 20240912
  Transmission Date: 20241016
  Serious: Yes (Other)
  Sender: ASTRAZENECA
  Company Number: 2024A204452

PATIENT
  Age: 74 Year
  Sex: Male

DRUGS (4)
  1. DAPAGLIFLOZIN PROPANEDIOL [Suspect]
     Active Substance: DAPAGLIFLOZIN PROPANEDIOL
     Indication: Type 2 diabetes mellitus
     Route: 048
  2. METFORMIN HYDROCHLORIDE [Concomitant]
     Active Substance: METFORMIN HYDROCHLORIDE
     Indication: Type 2 diabetes mellitus
     Route: 048
  3. PERDOTOR [Concomitant]
     Indication: Hypertension
     Route: 048
  4. PERDOTOR [Concomitant]
     Indication: Cardiac disorder
     Route: 048

REACTIONS (4)
  - Prostate cancer [Unknown]
  - Malignant melanoma [Unknown]
  - Road traffic accident [Unknown]
  - Arthritis [Unknown]
